FAERS Safety Report 19788302 (Version 4)
Quarter: 2022Q3

REPORT INFORMATION
  Report Type: Report from Study
  Country: CN (occurrence: CN)
  Receive Date: 20210903
  Receipt Date: 20220926
  Transmission Date: 20221027
  Serious: Yes (Hospitalization, Other)
  Sender: FDA-Public Use
  Company Number: CN-NOVARTISPH-NVSC2021CN180285

PATIENT
  Age: 59 Year
  Sex: Female
  Weight: 47 kg

DRUGS (9)
  1. ZYKADIA [Suspect]
     Active Substance: CERITINIB
     Indication: Non-small cell lung cancer
     Dosage: 450 MG
     Route: 048
     Dates: start: 20200921, end: 2021
  2. ZYKADIA [Suspect]
     Active Substance: CERITINIB
     Indication: Lung adenocarcinoma
     Dosage: 450 MG
     Route: 048
     Dates: start: 202105
  3. ZYKADIA [Suspect]
     Active Substance: CERITINIB
     Dosage: 150 MG
     Route: 048
     Dates: start: 2021
  4. ZYKADIA [Suspect]
     Active Substance: CERITINIB
     Dosage: 300 MG, QD
     Route: 048
     Dates: start: 20211229, end: 20220110
  5. ZYKADIA [Suspect]
     Active Substance: CERITINIB
     Dosage: 150 MG, QD
     Route: 048
     Dates: start: 20220110
  6. ZYKADIA [Suspect]
     Active Substance: CERITINIB
     Dosage: 300 MG
     Route: 048
  7. ZYKADIA [Suspect]
     Active Substance: CERITINIB
     Dosage: 150MG-300MG/DAY (SELF PURCHASED DRUGS)
     Route: 065
  8. ZYKADIA [Suspect]
     Active Substance: CERITINIB
     Dosage: 150 MG, QD
     Route: 048
     Dates: end: 202207
  9. ZYKADIA [Suspect]
     Active Substance: CERITINIB
     Dosage: 300 MG, QD
     Route: 048
     Dates: start: 202207

REACTIONS (11)
  - Osteoporosis [Not Recovered/Not Resolved]
  - Lumbar vertebral fracture [Not Recovered/Not Resolved]
  - Thoracic vertebral fracture [Not Recovered/Not Resolved]
  - Plasma cell myeloma [Unknown]
  - Lung adenocarcinoma stage III [Unknown]
  - Intervertebral disc protrusion [Unknown]
  - Lumbar spinal stenosis [Unknown]
  - Diarrhoea [Recovering/Resolving]
  - Rash [Recovered/Resolved]
  - Nausea [Recovering/Resolving]
  - Vomiting [Recovering/Resolving]

NARRATIVE: CASE EVENT DATE: 20210101
